FAERS Safety Report 8391223-8 (Version None)
Quarter: 2012Q2

REPORT INFORMATION
  Report Type: 
  Country: None (occurrence: None)
  Receive Date: 20120529
  Receipt Date: 20120516
  Transmission Date: 20120825
  Serious: Yes (Death)
  Sender: FDA-Public Use
  Company Number: US-MYLANLABS-2010S1021200

PATIENT
  Age: 49 Year
  Sex: Male
  Weight: 113.4 kg

DRUGS (20)
  1. SEROQUEL [Suspect]
  2. FLUVOXAMINE MALEATE [Suspect]
  3. NEXIUM [Concomitant]
  4. CLONAZEPAM [Concomitant]
  5. HYDROCHLOROTHIAZIDE [Concomitant]
  6. ALBUTEROL [Concomitant]
  7. EPIPEN [Concomitant]
  8. METHOCARBAMOL [Suspect]
     Indication: PAIN
  9. TYLENOL W/ CODEINE NO. 4 [Suspect]
     Indication: PAIN
     Route: 048
  10. NORVASC [Concomitant]
  11. ADVAIR DISKUS 100/50 [Concomitant]
     Dosage: 500UG/50UG
  12. DEPAKOTE ER [Concomitant]
  13. DOXAZOSIN MESYLATE [Concomitant]
  14. SINGULAIR [Concomitant]
  15. FENTANYL-100 [Suspect]
     Indication: PAIN
     Dosage: Q2D
     Route: 062
     Dates: end: 20081119
  16. TOPAMAX [Suspect]
  17. BENAZEPRIL HYDROCHLORIDE [Concomitant]
  18. ASTELIN [Concomitant]
     Route: 045
  19. PULMICORT [Concomitant]
  20. COLACE [Concomitant]

REACTIONS (2)
  - OVERDOSE [None]
  - TOXICITY TO VARIOUS AGENTS [None]
